FAERS Safety Report 9456349 (Version 3)
Quarter: 2013Q3

REPORT INFORMATION
  Report Type: Spontaneous
  Country: JP (occurrence: JP)
  Receive Date: 20130813
  Receipt Date: 20130903
  Transmission Date: 20140515
  Serious: Yes (Death, Hospitalization)
  Sender: FDA-Public Use
  Company Number: JP-GLAXOSMITHKLINE-B0914521A

PATIENT
  Age: 64 Year
  Sex: Female

DRUGS (7)
  1. LAMICTAL [Suspect]
     Indication: PROPHYLAXIS
     Dosage: 25MG PER DAY
     Route: 048
     Dates: start: 20130722, end: 20130804
  2. DEPAKENE [Suspect]
     Indication: BIPOLAR I DISORDER
     Dosage: 200MG TWICE PER DAY
     Route: 048
     Dates: start: 20070813
  3. RISPERDAL [Suspect]
     Indication: BIPOLAR I DISORDER
     Dosage: 1MG TWICE PER DAY
     Route: 048
     Dates: start: 20070813
  4. LEVOTOMIN [Concomitant]
     Indication: BIPOLAR I DISORDER
     Dosage: 10MG PER DAY
     Route: 048
     Dates: start: 20070813, end: 20130806
  5. LIMAS [Concomitant]
     Indication: BIPOLAR I DISORDER
     Dosage: 200MG PER DAY
     Route: 048
     Dates: start: 20070813, end: 20130806
  6. MICARDIS [Concomitant]
     Route: 048
  7. MYSLEE [Concomitant]
     Route: 048

REACTIONS (16)
  - Sudden death [Fatal]
  - Cardio-respiratory arrest [Fatal]
  - Hepatitis acute [Fatal]
  - Cardiac failure acute [Fatal]
  - Immobile [Unknown]
  - Dizziness [Unknown]
  - Gait disturbance [Recovered/Resolved]
  - Dysarthria [Recovering/Resolving]
  - Productive cough [Unknown]
  - Solar dermatitis [Unknown]
  - Cough [Unknown]
  - Urinary incontinence [Unknown]
  - Sleep apnoea syndrome [Fatal]
  - Cyanosis [Unknown]
  - Pyrexia [Unknown]
  - Overdose [Unknown]
